FAERS Safety Report 7014889-3 (Version None)
Quarter: 2010Q3

REPORT INFORMATION
  Report Type: 
  Country: None (occurrence: None)
  Receive Date: 20100927
  Receipt Date: 20090917
  Transmission Date: 20110219
  Serious: No
  Sender: FDA-Public Use
  Company Number: US-ASTRAZENECA-2009SE13915

PATIENT
  Age: 57 Year
  Sex: Female
  Weight: 65.8 kg

DRUGS (2)
  1. ARIMIDEX [Suspect]
     Route: 048
     Dates: start: 20090501, end: 20090907
  2. FOSAMAX [Concomitant]

REACTIONS (8)
  - ALOPECIA [None]
  - BURNING SENSATION [None]
  - HERPES ZOSTER [None]
  - MADAROSIS [None]
  - NASOPHARYNGITIS [None]
  - PAIN [None]
  - PRURITUS [None]
  - WEIGHT INCREASED [None]
